FAERS Safety Report 8233316-1 (Version None)
Quarter: 2012Q1

REPORT INFORMATION
  Report Type: 
  Country: None (occurrence: None)
  Receive Date: 20120323
  Receipt Date: 20120323
  Transmission Date: 20120608
  Serious: Yes (Other)
  Sender: FDA-Public Use
  Company Number: None

PATIENT
  Sex: Male
  Weight: 37.6486 kg

DRUGS (2)
  1. DEPAKOTE [Concomitant]
  2. OLANZAPINE [Suspect]
     Indication: AGITATION
     Dosage: OLANZIPINE 20MG DAILY P.O.
     Route: 048
     Dates: start: 20110802, end: 20120307

REACTIONS (4)
  - CRYING [None]
  - AGGRESSION [None]
  - EMOTIONAL DISORDER [None]
  - POOR QUALITY SLEEP [None]
